FAERS Safety Report 20900166 (Version 1)
Quarter: 2022Q2

REPORT INFORMATION
  Report Type: Spontaneous
  Country: US (occurrence: US)
  Receive Date: 20220601
  Receipt Date: 20220601
  Transmission Date: 20220721
  Serious: Yes (Death, Hospitalization, Other)
  Sender: FDA-Public Use
  Company Number: US-AMGEN-USASP2022094520

PATIENT
  Age: 80 Year
  Sex: Female

DRUGS (14)
  1. LUMAKRAS [Suspect]
     Active Substance: SOTORASIB
     Indication: Lung neoplasm malignant
     Dosage: 960 MILLIGRAM, QD
     Route: 048
     Dates: start: 20211027, end: 20220506
  2. ALLOPURINOL [Concomitant]
     Active Substance: ALLOPURINOL
     Dosage: 300 MILLIGRAM
  3. AMLODIPINE [Concomitant]
     Active Substance: AMLODIPINE BESYLATE
     Dosage: 10 MILLIGRAM
  4. FAMOTIDINE [Concomitant]
     Active Substance: FAMOTIDINE
     Dosage: 20 MILLIGRAM
  5. GABAPENTIN [Concomitant]
     Active Substance: GABAPENTIN
     Dosage: 300 MILLIGRAM
  6. SPIRIVA [Concomitant]
     Active Substance: TIOTROPIUM BROMIDE MONOHYDRATE
     Dosage: 18 MICROGRAM
  7. TYLENOL [Concomitant]
     Active Substance: ACETAMINOPHEN
  8. FLUTICASONE [Concomitant]
     Active Substance: FLUTICASONE
  9. HYDROCODONE [Concomitant]
     Active Substance: HYDROCODONE
  10. JANUVIA [Concomitant]
     Active Substance: SITAGLIPTIN PHOSPHATE
  11. LORATADINE [Concomitant]
     Active Substance: LORATADINE
  12. POTASSIUM [Concomitant]
     Active Substance: POTASSIUM
  13. ROSUVASTATIN [Concomitant]
     Active Substance: ROSUVASTATIN
  14. VENTOLIN [Concomitant]
     Active Substance: ALBUTEROL SULFATE

REACTIONS (1)
  - Acute respiratory failure [Fatal]

NARRATIVE: CASE EVENT DATE: 20220501
